FAERS Safety Report 20852810 (Version 1)
Quarter: 2022Q2

REPORT INFORMATION
  Report Type: Spontaneous
  Country: US (occurrence: None)
  Receive Date: 20220519
  Receipt Date: 20220519
  Transmission Date: 20220721
  Serious: No
  Sender: FDA-Public Use
  Company Number: None

PATIENT
  Sex: Male
  Weight: 97.98 kg

DRUGS (28)
  1. ABIRATERONE [Suspect]
     Active Substance: ABIRATERONE
     Indication: Prostate cancer
     Dosage: 1000MG DAILY ORAL?
     Route: 048
     Dates: start: 202204
  2. METFORMIN HYDROCHLORIDE [Concomitant]
     Active Substance: METFORMIN HYDROCHLORIDE
  3. FENFIBRATE [Concomitant]
  4. BICALUTAMIDE [Concomitant]
     Active Substance: BICALUTAMIDE
  5. ZOLADEX [Concomitant]
     Active Substance: GOSERELIN ACETATE
  6. SINGULAIR [Concomitant]
     Active Substance: MONTELUKAST SODIUM
  7. ASPIRIN [Concomitant]
     Active Substance: ASPIRIN
  8. TAMSULOSIN [Concomitant]
     Active Substance: TAMSULOSIN
  9. LOSARTAN [Concomitant]
     Active Substance: LOSARTAN
  10. METAMUCIL [Concomitant]
     Active Substance: PLANTAGO SEED
  11. TERBINAFINE [Concomitant]
     Active Substance: TERBINAFINE
  12. KETOCONAZOLE [Concomitant]
     Active Substance: KETOCONAZOLE
  13. TYLENOL [Concomitant]
     Active Substance: ACETAMINOPHEN
  14. ATORVASTATIN [Concomitant]
     Active Substance: ATORVASTATIN
  15. AMLODIPINE [Concomitant]
     Active Substance: AMLODIPINE BESYLATE
  16. CLOPIDOGREL [Concomitant]
     Active Substance: CLOPIDOGREL BISULFATE
  17. ISOSORBIDE [Concomitant]
     Active Substance: ISOSORBIDE
  18. EZETIMIBE [Concomitant]
     Active Substance: EZETIMIBE
  19. ZINC-VITAMIN C [Concomitant]
  20. ENSURE [Concomitant]
     Active Substance: AMINO ACIDS\DEXTROSE\ELECTROLYTES NOS\SOYBEAN OIL\VITAMINS
  21. METHOCARBAMOL [Concomitant]
     Active Substance: METHOCARBAMOL
  22. GLIPIZIDE [Concomitant]
     Active Substance: GLIPIZIDE
  23. LANTUS [Concomitant]
     Active Substance: INSULIN GLARGINE
  24. BENAONATATE [Concomitant]
  25. NORCO [Concomitant]
     Active Substance: ACETAMINOPHEN\HYDROCODONE BITARTRATE
  26. ROSUVASTATIN [Concomitant]
     Active Substance: ROSUVASTATIN
  27. METOPROLOL [Concomitant]
     Active Substance: METOPROLOL
  28. PANTOPRAZOLE [Concomitant]
     Active Substance: PANTOPRAZOLE

REACTIONS (2)
  - Disease progression [None]
  - Prostatic specific antigen increased [None]
